FAERS Safety Report 8015481-4 (Version None)
Quarter: 2011Q4

REPORT INFORMATION
  Report Type: 
  Country: None (occurrence: None)
  Receive Date: 20111223
  Receipt Date: 20111209
  Transmission Date: 20120403
  Serious: Yes (Other)
  Sender: FDA-Public Use
  Company Number: CIO11020807

PATIENT
  Age: 69 Year
  Sex: Female
  Weight: 64.9 kg

DRUGS (5)
  1. CARAFATE [Concomitant]
  2. ALBUTEROL [Concomitant]
  3. ACIPHEX [Concomitant]
  4. METAMUCIL-2 [Suspect]
     Indication: PROPHYLAXIS
     Dosage: 1 CAPSULE, 3/DAY, ORAL
     Route: 048
  5. XYZAL [Concomitant]

REACTIONS (8)
  - CHEST DISCOMFORT [None]
  - WHEEZING [None]
  - RASH MACULAR [None]
  - SENSATION OF FOREIGN BODY [None]
  - HYPERSENSITIVITY [None]
  - RASH PRURITIC [None]
  - RESPIRATORY DISORDER [None]
  - DYSPNOEA [None]
